FAERS Safety Report 9241938 (Version 1)
Quarter: 2013Q2

REPORT INFORMATION
  Report Type: Spontaneous
  Country: US (occurrence: US)
  Receive Date: 20130419
  Receipt Date: 20130419
  Transmission Date: 20140414
  Serious: No
  Sender: FDA-Public Use
  Company Number: US-PFIZER INC-2013118337

PATIENT
  Age: 49 Year
  Sex: Female

DRUGS (33)
  1. GEODON [Suspect]
     Dosage: 80 MG, 2X/DAY
     Route: 048
  2. OMEGA 3 [Concomitant]
     Dosage: 7200 MG, DAILY
     Route: 048
  3. CARDIZEM CD [Concomitant]
     Dosage: 120 MG DAILY
     Route: 048
  4. LEVAQUIN [Concomitant]
     Dosage: 500 MG DAILY
     Route: 048
  5. ROBITUSSIN AC [Concomitant]
     Dosage: 5 ML (100MG-10MG), 3 TIMES DAILY, AS NEEDED
     Route: 048
  6. PROZAC [Concomitant]
     Dosage: 40MG CAPSULE AND 10MG CAPSULE, EVERY MORNING
     Route: 048
  7. FIORICET W/CODEINE [Concomitant]
     Dosage: 1 DF (50MG/325MG/40MG/30MG), EVERY 4 TO 6 HOURS AS NEEDED
     Route: 048
  8. NORCO [Concomitant]
     Dosage: 1-2 TABLETS EVERY 4-6 HOURS AS NEEDED
     Route: 048
  9. LOFIBRA [Concomitant]
     Dosage: 200 MG DAILY 30 MINUTES BEFORE BREAKFAST
     Route: 048
  10. KLONOPIN [Concomitant]
     Dosage: 2 MG TWICE DAILY AS NEEDED
     Route: 048
  11. LISINOPRIL [Concomitant]
     Dosage: 2.5 MG DAILY
     Route: 048
  12. LASIX [Concomitant]
     Dosage: 40 MG, 2X/DAY
     Route: 048
  13. SYNTHROID [Concomitant]
     Dosage: 50 MCG DAILY, ON EMPTY STOMACH 1 HOUR BEFORE EATING
     Route: 048
  14. PLAVIX [Concomitant]
     Dosage: 75 MG DAILY
     Route: 048
  15. LOVAZA [Concomitant]
     Dosage: 2 G (TWO CAPSULES), 2X/DAY
     Route: 048
  16. MICRO-K [Concomitant]
     Dosage: 10 MEQ, 2X/DAY
     Route: 048
  17. LANTUS [Concomitant]
     Dosage: 65 UNITS DAILY
     Route: 058
  18. PRAVACHOL [Concomitant]
     Dosage: 40 MG DAILY EVERY EVENING
     Route: 048
  19. COLACE [Concomitant]
     Dosage: 100 MG DAILY
     Route: 048
  20. NEXIUM [Concomitant]
     Dosage: 40 MG, 2X/DAY 30 MINUTES BEFORE BREAKFAST AND DINNER
     Route: 048
  21. SINGULAIR [Concomitant]
     Dosage: 10 MG EVERY EVENING
     Route: 048
  22. PHENERGAN [Concomitant]
     Dosage: 50MG (TWO TABLETS), EVERY 8-12 HOURS AS NEEDED
     Route: 048
  23. ZETIA [Concomitant]
     Dosage: 10 MG DAILY
     Route: 048
  24. ADVAIR DISKUS [Concomitant]
     Dosage: 1 PUFF (250MCG/50MCG), 2X/DAY
     Route: 055
  25. CARDIZEM [Concomitant]
     Dosage: 30 MG, 3X/DAY
     Route: 048
  26. FOSAMAX [Concomitant]
     Dosage: 70 MG, WEEKLY IN THE MORNING
     Route: 048
  27. LIDOCAINE [Concomitant]
     Dosage: APPLY SMALL AMOUNT TO GUMS, TWICE DAILY AS NEEDED
  28. ECOTRIN [Concomitant]
     Dosage: 81 MG EVERY 12 HOURS WITH FOOD
     Route: 048
  29. PULMICORT [Concomitant]
     Dosage: 1 PILLOW VIA NEBULIZER, 2X/DAY
  30. PREMARIN [Concomitant]
     Dosage: 0.625 MG DAILY
     Route: 048
  31. XOPENEX HFA [Concomitant]
     Dosage: 2 PUFFS BY MOUTH EVERY 4 HOURS AS NEEDED
     Route: 048
  32. CALCARB 600/D [Concomitant]
     Dosage: 1 TABLET (600MG/400MG), 2X/DAY
     Route: 048
  33. LANOXIN [Concomitant]
     Dosage: 0.125 MG DAILY EVERY EVENING
     Route: 048

REACTIONS (2)
  - Nausea [Unknown]
  - Vomiting [Unknown]
